FAERS Safety Report 21279711 (Version 1)
Quarter: 2022Q3

REPORT INFORMATION
  Report Type: Spontaneous
  Country: US (occurrence: US)
  Receive Date: 20220901
  Receipt Date: 20220901
  Transmission Date: 20221027
  Serious: No
  Sender: FDA-Public Use
  Company Number: US-PERRIGO-21US029949

PATIENT
  Age: 63 Year
  Sex: Male
  Weight: 106.58 kg

DRUGS (7)
  1. TRIAMCINOLONE ACETONIDE [Suspect]
     Active Substance: TRIAMCINOLONE ACETONIDE
     Indication: Seasonal allergy
     Dosage: 110 MCG, QD
     Route: 045
     Dates: end: 20211020
  2. LOSARTAN [Concomitant]
     Active Substance: LOSARTAN
     Indication: Blood pressure abnormal
     Dosage: UNK
     Route: 065
  3. CLONAZEPAM [Concomitant]
     Active Substance: CLONAZEPAM
     Indication: Anxiety
     Dosage: UNK
     Route: 065
  4. ROSUVASTATIN [Concomitant]
     Active Substance: ROSUVASTATIN
     Indication: Blood cholesterol abnormal
     Dosage: UNK
     Route: 065
  5. METFORMIN [Concomitant]
     Active Substance: METFORMIN HYDROCHLORIDE
     Indication: Diabetes mellitus
     Dosage: UNK
     Route: 065
  6. ASPIRIN [Concomitant]
     Active Substance: ASPIRIN
     Indication: Prophylaxis
     Dosage: UNK
     Route: 065
  7. CLARITIN [Concomitant]
     Active Substance: LORATADINE
     Indication: Seasonal allergy
     Dosage: UNK
     Route: 065

REACTIONS (1)
  - Nausea [Recovered/Resolved]

NARRATIVE: CASE EVENT DATE: 20211001
